FAERS Safety Report 20369219 (Version 1)
Quarter: 2022Q1

REPORT INFORMATION
  Report Type: Spontaneous
  Country: US (occurrence: None)
  Receive Date: 20220124
  Receipt Date: 20220124
  Transmission Date: 20220423
  Serious: Yes (Hospitalization)
  Sender: FDA-Public Use
  Company Number: None

PATIENT
  Age: 79 Year
  Sex: Male
  Weight: 87 kg

DRUGS (8)
  1. CARBOPLATIN [Suspect]
     Active Substance: CARBOPLATIN
     Dates: end: 20211221
  2. CARBOPLATIN [Suspect]
     Active Substance: CARBOPLATIN
     Dates: start: 20211207
  3. CARBOPLATIN [Suspect]
     Active Substance: CARBOPLATIN
     Dates: start: 20211214
  4. CARBOPLATIN [Suspect]
     Active Substance: CARBOPLATIN
     Dates: start: 20211221
  5. TAXOL [Suspect]
     Active Substance: PACLITAXEL
     Dates: end: 20211221
  6. TAXOL [Suspect]
     Active Substance: PACLITAXEL
     Dates: start: 20211207
  7. TAXOL [Suspect]
     Active Substance: PACLITAXEL
     Dates: start: 20211214
  8. TAXOL [Suspect]
     Active Substance: PACLITAXEL
     Dates: start: 20211221

REACTIONS (9)
  - Vision blurred [None]
  - Dehydration [None]
  - Dizziness [None]
  - Acute kidney injury [None]
  - Hypomagnesaemia [None]
  - Presyncope [None]
  - Hypotension [None]
  - Atrial fibrillation [None]
  - Shock [None]

NARRATIVE: CASE EVENT DATE: 20211226
